FAERS Safety Report 9154772 (Version 1)
Quarter: 2013Q1

REPORT INFORMATION
  Report Type: Spontaneous
  Country: US (occurrence: US)
  Receive Date: 20130311
  Receipt Date: 20130311
  Transmission Date: 20140127
  Serious: Yes (Other)
  Sender: FDA-Public Use
  Company Number: US-009507513-1303USA001892

PATIENT
  Age: 46 Year
  Sex: Female

DRUGS (15)
  1. SINGULAIR [Suspect]
  2. CYMBALTA [Concomitant]
  3. EFFEXOR [Concomitant]
  4. REBIF [Concomitant]
  5. ZOLOFT [Concomitant]
     Dosage: 100 MG, (100 MG 1 IN 1 D) UNK
     Route: 048
  6. ZOLOFT [Concomitant]
     Dosage: 50 MG, (50 MG1 IN 1 D), UNK
     Route: 048
  7. ZOLOFT [Concomitant]
     Dosage: 100 MG, (50 MG 2 IN 1 D) UNK
     Route: 048
  8. CELEXA [Concomitant]
  9. ZESTRIL [Concomitant]
     Indication: DEPRESSION
  10. WELLBUTRIN [Concomitant]
     Indication: MENOPAUSAL SYMPTOMS
  11. PERCOCET [Concomitant]
  12. KLONOPIN [Concomitant]
  13. PROVIGIL [Concomitant]
  14. NEURONTIN [Concomitant]
  15. LIPITOR [Concomitant]

REACTIONS (12)
  - Pruritus [Unknown]
  - Palpitations [Unknown]
  - Pain [Unknown]
  - Nausea [Unknown]
  - Musculoskeletal discomfort [Unknown]
  - Muscle spasms [Unknown]
  - Hypokinesia [Unknown]
  - Hypertension [Unknown]
  - Hypersensitivity [Unknown]
  - Hyperhidrosis [Unknown]
  - Drug hypersensitivity [Unknown]
  - Depressed mood [Unknown]
